FAERS Safety Report 14262291 (Version 1)
Quarter: 2017Q4

REPORT INFORMATION
  Report Type: Spontaneous
  Country: JP (occurrence: JP)
  Receive Date: 20171208
  Receipt Date: 20171208
  Transmission Date: 20180321
  Serious: Yes (Life-Threatening, Other)
  Sender: FDA-Public Use
  Company Number: JP-ACCORD-061428

PATIENT
  Age: 65 Year
  Sex: Male

DRUGS (4)
  1. CISPLATIN. [Suspect]
     Active Substance: CISPLATIN
     Indication: ACINAR CELL CARCINOMA OF PANCREAS
  2. ETOPOSIDE. [Suspect]
     Active Substance: ETOPOSIDE
     Indication: ACINAR CELL CARCINOMA OF PANCREAS
  3. GEMCITABINE/GEMCITABINE HYDROCHLORIDE [Suspect]
     Active Substance: GEMCITABINE\GEMCITABINE HYDROCHLORIDE
     Indication: DUCTAL ADENOCARCINOMA OF PANCREAS
     Dosage: ON DAYS 1, 8, AND 15, OF EVERY 28-DAY CYCLE
  4. TEGAFUR/GIMERACIL/OTERACIL POTASSIUM [Concomitant]
     Indication: DUCTAL ADENOCARCINOMA OF PANCREAS
     Dosage: FROM DAYS 1 TO 28 OF EACH 42- DAY CYCLE
     Route: 048

REACTIONS (5)
  - Nausea [None]
  - Leukopenia [Unknown]
  - Decreased appetite [None]
  - Neutropenia [Unknown]
  - Drug ineffective [Unknown]
